FAERS Safety Report 12424650 (Version 3)
Quarter: 2016Q3

REPORT INFORMATION
  Report Type: Report from Study
  Country: US (occurrence: US)
  Receive Date: 20160601
  Receipt Date: 20160901
  Transmission Date: 20161109
  Serious: Yes (Other)
  Sender: FDA-Public Use
  Company Number: US-BAYER-2016-075945

PATIENT
  Age: 43 Year
  Sex: Female
  Weight: 117.91 kg

DRUGS (7)
  1. COUMADIN [Concomitant]
     Active Substance: WARFARIN SODIUM
  2. ADEMPAS [Suspect]
     Active Substance: RIOCIGUAT
     Indication: PULMONARY HYPERTENSION
     Dosage: 1.5 MG, TID
     Route: 048
  3. APIXABAN [Concomitant]
     Active Substance: APIXABAN
  4. ADEMPAS [Suspect]
     Active Substance: RIOCIGUAT
     Indication: PULMONARY HYPERTENSION
     Dosage: 2.5 MG, TID
     Route: 048
  5. ADEMPAS [Suspect]
     Active Substance: RIOCIGUAT
     Indication: PULMONARY HYPERTENSION
     Dosage: 1.5 MG, TID
     Route: 048
  6. ADEMPAS [Suspect]
     Active Substance: RIOCIGUAT
     Indication: PULMONARY HYPERTENSION
     Dosage: 1 MG, TID
     Route: 048
  7. ADEMPAS [Suspect]
     Active Substance: RIOCIGUAT
     Indication: PULMONARY HYPERTENSION
     Dosage: UNK
     Dates: start: 20160303

REACTIONS (21)
  - Pulmonary thrombosis [Unknown]
  - Blood potassium decreased [Unknown]
  - Muscle spasms [Recovered/Resolved]
  - Nausea [Unknown]
  - Decreased appetite [Unknown]
  - Dizziness [None]
  - Chest discomfort [None]
  - Fatigue [None]
  - Dyspnoea [None]
  - Anaemia [None]
  - Somnolence [Unknown]
  - Muscular weakness [None]
  - Back pain [None]
  - Dizziness [Recovered/Resolved]
  - Fatigue [Unknown]
  - Sleep apnoea syndrome [Unknown]
  - Epistaxis [Recovered/Resolved]
  - Nasal discomfort [Recovered/Resolved]
  - Headache [None]
  - Joint swelling [Recovered/Resolved]
  - Headache [None]

NARRATIVE: CASE EVENT DATE: 20160425
